FAERS Safety Report 8350735-3 (Version None)
Quarter: 2012Q2

REPORT INFORMATION
  Report Type: 
  Country: None (occurrence: None)
  Receive Date: 20120510
  Receipt Date: 20120502
  Transmission Date: 20120825
  Serious: Yes (Hospitalization)
  Sender: FDA-Public Use
  Company Number: US-GLAXOSMITHKLINE-A0950896A

PATIENT
  Age: 32 Year
  Sex: Female
  Weight: 100 kg

DRUGS (13)
  1. CITALOPRAM HYDROBROMIDE [Concomitant]
     Dosage: 10MG PER DAY
  2. LASIX [Concomitant]
     Dosage: 40MG PER DAY
  3. PATANASE [Concomitant]
  4. POTASSIUM CHLORIDE [Concomitant]
     Dosage: 20MEQ PER DAY
  5. DIGOXIN [Concomitant]
     Dosage: 250MCG PER DAY
  6. LETAIRIS [Concomitant]
     Dosage: 10MG PER DAY
  7. CLARITIN [Concomitant]
     Dosage: 10MG PER DAY
  8. FLOLAN [Suspect]
     Indication: PULMONARY ARTERIAL HYPERTENSION
     Dosage: 35NGKM PER DAY
     Route: 042
     Dates: start: 20080502
  9. COUMADIN [Concomitant]
  10. REVATIO [Concomitant]
     Dosage: 40MG THREE TIMES PER DAY
  11. FAMOTIDINE [Concomitant]
     Dosage: 40MG PER DAY
  12. DOCUSATE [Concomitant]
     Dosage: 250MG PER DAY
  13. LORTAB [Concomitant]

REACTIONS (4)
  - PNEUMOTHORAX [None]
  - FLUSHING [None]
  - LUNG DISORDER [None]
  - PAIN IN JAW [None]
